FAERS Safety Report 5598437-0 (Version None)
Quarter: 2008Q1

REPORT INFORMATION
  Report Type: 
  Country: None (occurrence: None)
  Receive Date: 20080122
  Receipt Date: 20080114
  Transmission Date: 20080703
  Serious: Yes (Hospitalization)
  Sender: FDA-Public Use
  Company Number: FR-ASTRAZENECA-2008CG00076

PATIENT
  Age: 15407 Day
  Sex: Female

DRUGS (3)
  1. DIPRIVAN [Suspect]
     Indication: ANAESTHESIA
     Route: 042
     Dates: start: 20070503, end: 20070503
  2. HYPNOVEL [Suspect]
     Indication: ANAESTHESIA
     Route: 042
     Dates: start: 20070503, end: 20070503
  3. TRACRIUM [Suspect]
     Route: 042
     Dates: start: 20070503, end: 20070503

REACTIONS (4)
  - APPLICATION SITE ERYTHEMA [None]
  - BRADYCARDIA [None]
  - NODAL ARRHYTHMIA [None]
  - SINOATRIAL BLOCK [None]
